FAERS Safety Report 19543079 (Version 1)
Quarter: 2021Q3

REPORT INFORMATION
  Report Type: Spontaneous
  Country: US (occurrence: US)
  Receive Date: 20210713
  Receipt Date: 20210713
  Transmission Date: 20211014
  Serious: Yes (Death, Other)
  Sender: FDA-Public Use
  Company Number: US-STRIDES ARCOLAB LIMITED-2021SP015783

PATIENT
  Age: 81 Year
  Sex: Female

DRUGS (3)
  1. RANITIDINE. [Suspect]
     Active Substance: RANITIDINE
     Indication: DYSPEPSIA
  2. RANITIDINE. [Suspect]
     Active Substance: RANITIDINE
     Dosage: UNK
     Route: 048
     Dates: start: 199001, end: 201905
  3. RANITIDINE. [Suspect]
     Active Substance: RANITIDINE
     Indication: GASTROOESOPHAGEAL REFLUX DISEASE

REACTIONS (6)
  - Lung neoplasm malignant [Fatal]
  - Metastases to lung [Fatal]
  - Brain neoplasm malignant [Fatal]
  - Metastases to central nervous system [Fatal]
  - Metastases to heart [Fatal]
  - Renal cancer [Fatal]

NARRATIVE: CASE EVENT DATE: 20190201
